FAERS Safety Report 4316522-8 (Version None)
Quarter: 2004Q1

REPORT INFORMATION
  Report Type: 
  Country: None (occurrence: None)
  Receive Date: 20040312
  Receipt Date: 20040309
  Transmission Date: 20041129
  Serious: Yes (Life-Threatening, Hospitalization)
  Sender: FDA-Public Use
  Company Number: WAES 0403AUS00318

PATIENT
  Age: 69 Year
  Sex: Male

DRUGS (5)
  1. ASPIRIN AND DIPYRIDAMOLE [Concomitant]
  2. ATORVASTATIN CALCIUM [Concomitant]
  3. PANTOPRAZOLE SODIUM [Concomitant]
  4. VIOXX [Suspect]
     Indication: OSTEOARTHRITIS
     Route: 048
     Dates: start: 20020301
  5. VENLAFAXINE HYDROCHLORIDE [Concomitant]

REACTIONS (3)
  - CONVULSION [None]
  - SEPSIS [None]
  - URINARY TRACT INFECTION [None]
